FAERS Safety Report 8045055-0 (Version None)
Quarter: 2012Q1

REPORT INFORMATION
  Report Type: 
  Country: None (occurrence: None)
  Receive Date: 20120113
  Receipt Date: 20120109
  Transmission Date: 20120608
  Serious: Yes (Hospitalization)
  Sender: FDA-Public Use
  Company Number: PHEH2012US000880

PATIENT
  Sex: Male

DRUGS (3)
  1. RYTHMOL [Concomitant]
     Dosage: UNK
  2. CORGARD [Concomitant]
     Dosage: UNK
  3. DIOVAN [Suspect]
     Dosage: 160 MG, QD

REACTIONS (2)
  - BLOOD PRESSURE DECREASED [None]
  - CARDIAC DISORDER [None]
